FAERS Safety Report 15852475 (Version 1)
Quarter: 2019Q1

REPORT INFORMATION
  Report Type: Spontaneous
  Country: IT (occurrence: IT)
  Receive Date: 20190122
  Receipt Date: 20190122
  Transmission Date: 20190417
  Serious: Yes (Other)
  Sender: FDA-Public Use
  Company Number: IT-AUROBINDO-AUR-APL-2019-001569

PATIENT
  Age: 58 Year
  Sex: Male

DRUGS (8)
  1. GLICLAZIDE [Suspect]
     Active Substance: GLICLAZIDE
     Indication: TYPE 2 DIABETES MELLITUS
     Dosage: 60 MILLIGRAM
     Route: 065
     Dates: start: 201606
  2. INSULIN DEGLUDEC [Suspect]
     Active Substance: INSULIN DEGLUDEC
     Dosage: 12 IU
     Route: 065
     Dates: start: 201701
  3. METFORMIN [Suspect]
     Active Substance: METFORMIN HYDROCHLORIDE
     Dosage: 850 MILLIGRAM, 3 TIMES A DAY
     Route: 065
     Dates: start: 201606
  4. GLICLAZIDE [Suspect]
     Active Substance: GLICLAZIDE
     Dosage: 30 MILLIGRAM
     Route: 065
     Dates: start: 201606
  5. METFORMIN [Suspect]
     Active Substance: METFORMIN HYDROCHLORIDE
     Indication: TYPE 2 DIABETES MELLITUS
     Dosage: 1000 MILLIGRAM 3 TIMES A DAY
     Route: 065
     Dates: start: 201701
  6. METFORMIN [Suspect]
     Active Substance: METFORMIN HYDROCHLORIDE
     Dosage: 500MILLIGRAM, TWO TIMES A DAY
     Route: 065
  7. INSULIN DEGLUDEC [Suspect]
     Active Substance: INSULIN DEGLUDEC
     Indication: TYPE 2 DIABETES MELLITUS
     Dosage: 20 IU
     Route: 065
     Dates: start: 201707
  8. INSULIN DEGLUDEC [Suspect]
     Active Substance: INSULIN DEGLUDEC
     Dosage: 16 IU
     Route: 065
     Dates: start: 201802

REACTIONS (4)
  - Hyperglycaemia [Unknown]
  - Hypoglycaemia [Unknown]
  - Diabetes mellitus inadequate control [Unknown]
  - Microalbuminuria [Unknown]

NARRATIVE: CASE EVENT DATE: 201802
